FAERS Safety Report 9476658 (Version 1)
Quarter: 2013Q3

REPORT INFORMATION
  Report Type: Spontaneous
  Country: US (occurrence: US)
  Receive Date: 20130826
  Receipt Date: 20130826
  Transmission Date: 20140515
  Serious: No
  Sender: FDA-Public Use
  Company Number: US-BRISTOL-MYERS SQUIBB COMPANY-18737692

PATIENT
  Age: 77 Year
  Sex: Female

DRUGS (2)
  1. KENALOG-10 INJ [Suspect]
     Indication: ARTHRALGIA
     Dosage: AGO 3 MONTHS
     Route: 014
  2. SYNVISC [Concomitant]

REACTIONS (3)
  - Drug ineffective [Unknown]
  - Intentional drug misuse [Unknown]
  - Arthralgia [Unknown]
